FAERS Safety Report 9476790 (Version 3)
Quarter: 2016Q4

REPORT INFORMATION
  Report Type: Report from Study
  Country: CA (occurrence: CA)
  Receive Date: 20130826
  Receipt Date: 20161026
  Transmission Date: 20170207
  Serious: Yes (Other)
  Sender: FDA-Public Use
  Company Number: CA-ROCHE-1196827

PATIENT
  Age: 72 Year
  Sex: Female
  Weight: 63.5 kg

DRUGS (16)
  1. HYDROXYCHLOROQUINE [Concomitant]
     Active Substance: HYDROXYCHLOROQUINE
  2. RITUXAN [Suspect]
     Active Substance: RITUXIMAB
     Indication: RHEUMATOID ARTHRITIS
     Route: 042
     Dates: start: 20120808
  3. SULFASALAZINE. [Concomitant]
     Active Substance: SULFASALAZINE
  4. MELOXICAM. [Concomitant]
     Active Substance: MELOXICAM
  5. RITUXAN [Suspect]
     Active Substance: RITUXIMAB
     Indication: PULMONARY MASS
  6. PREDNISONE. [Concomitant]
     Active Substance: PREDNISONE
     Indication: PREMEDICATION
     Route: 065
     Dates: start: 20120808
  7. DIPHENHYDRAMINE HCL [Concomitant]
     Active Substance: DIPHENHYDRAMINE HYDROCHLORIDE
     Indication: PREMEDICATION
     Route: 048
     Dates: start: 20120808
  8. COVERSYL [Suspect]
     Active Substance: PERINDOPRIL
     Route: 065
  9. FOLIC ACID. [Concomitant]
     Active Substance: FOLIC ACID
     Route: 065
  10. ACETAMINOPHEN. [Concomitant]
     Active Substance: ACETAMINOPHEN
     Indication: PREMEDICATION
     Route: 048
     Dates: start: 20120808
  11. COVERSYL [Suspect]
     Active Substance: PERINDOPRIL
     Indication: HYPERTENSION
     Route: 065
  12. ALENDRONATE [Concomitant]
     Active Substance: ALENDRONATE SODIUM
  13. RITUXAN [Suspect]
     Active Substance: RITUXIMAB
     Indication: PNEUMOTHORAX
  14. HYDROCHLOROTHIAZIDE. [Suspect]
     Active Substance: HYDROCHLOROTHIAZIDE
     Indication: HYPERTENSION
     Route: 065
     Dates: start: 2012
  15. HYDROCHLOROTHIAZIDE. [Suspect]
     Active Substance: HYDROCHLOROTHIAZIDE
     Route: 065
  16. METHOTREXATE. [Concomitant]
     Active Substance: METHOTREXATE
     Route: 065

REACTIONS (5)
  - Hypotension [Unknown]
  - Bronchitis [Not Recovered/Not Resolved]
  - Oedema peripheral [Unknown]
  - Blood pressure increased [Unknown]
  - Huerthle cell carcinoma [Not Recovered/Not Resolved]

NARRATIVE: CASE EVENT DATE: 201210
